FAERS Safety Report 6697536-X (Version None)
Quarter: 2010Q2

REPORT INFORMATION
  Report Type: 
  Country: None (occurrence: None)
  Receive Date: 20100421
  Receipt Date: 20090428
  Transmission Date: 20101027
  Serious: Yes (Other)
  Sender: FDA-Public Use
  Company Number: 20090138

PATIENT
  Age: 27 Year
  Sex: Female
  Weight: 65.318 kg

DRUGS (1)
  1. DEXFERRUM [Suspect]
     Indication: IRON DEFICIENCY ANAEMIA
     Dosage: 2000 MG ONE TIME, INTRAVENOUS
     Route: 042
     Dates: start: 20090415

REACTIONS (1)
  - PRURITUS [None]
